FAERS Safety Report 13562096 (Version 1)
Quarter: 2017Q2

REPORT INFORMATION
  Report Type: Report from Study
  Country: US (occurrence: US)
  Receive Date: 20170519
  Receipt Date: 20170519
  Transmission Date: 20170830
  Serious: Yes (Death, Hospitalization, Other)
  Sender: FDA-Public Use
  Company Number: US-BEH-2017079098

PATIENT
  Age: 54 Year
  Sex: Female
  Weight: 43.54 kg

DRUGS (1)
  1. ZEMAIRA [Suspect]
     Active Substance: .ALPHA.1-PROTEINASE INHIBITOR HUMAN
     Indication: ALPHA-1 ANTI-TRYPSIN DEFICIENCY
     Dosage: QW
     Route: 042

REACTIONS (3)
  - Lower respiratory tract infection bacterial [Recovering/Resolving]
  - Hospitalisation [Fatal]
  - Death [Fatal]
